FAERS Safety Report 16584956 (Version 2)
Quarter: 2019Q3

REPORT INFORMATION
  Report Type: Spontaneous
  Country: ES (occurrence: ES)
  Receive Date: 20190717
  Receipt Date: 20190802
  Transmission Date: 20191004
  Serious: Yes (Other)
  Sender: FDA-Public Use
  Company Number: PHHY2019ES162604

PATIENT
  Age: 64 Year
  Sex: Male

DRUGS (9)
  1. EFALIZUMAB [Suspect]
     Active Substance: EFALIZUMAB
     Indication: PSORIASIS
     Dosage: UNK
     Route: 065
  2. ETANERCEPT [Suspect]
     Active Substance: ETANERCEPT
     Indication: PSORIASIS
     Dosage: UNK
     Route: 065
  3. CICLOSPORIN [Suspect]
     Active Substance: CYCLOSPORINE
     Indication: PSORIASIS
     Dosage: UNK
     Route: 065
  4. ETANERCEPT [Suspect]
     Active Substance: ETANERCEPT
     Indication: PSORIATIC ARTHROPATHY
  5. CICLOSPORIN [Suspect]
     Active Substance: CYCLOSPORINE
     Indication: PSORIATIC ARTHROPATHY
  6. CICLOSPORIN [Suspect]
     Active Substance: CYCLOSPORINE
     Indication: HIV INFECTION
  7. ETANERCEPT [Suspect]
     Active Substance: ETANERCEPT
     Indication: HIV INFECTION
  8. EFALIZUMAB [Suspect]
     Active Substance: EFALIZUMAB
     Indication: PSORIATIC ARTHROPATHY
  9. EFALIZUMAB [Suspect]
     Active Substance: EFALIZUMAB
     Indication: HIV INFECTION

REACTIONS (1)
  - Hypertension [Unknown]
